FAERS Safety Report 15567085 (Version 1)
Quarter: 2018Q4

REPORT INFORMATION
  Report Type: Spontaneous
  Country: US (occurrence: US)
  Receive Date: 20181030
  Receipt Date: 20181030
  Transmission Date: 20190205
  Serious: Yes (Hospitalization)
  Sender: FDA-Public Use
  Company Number: US-TASMAN PHARMA, INC.-2018TSM00176

PATIENT
  Age: 24 Year
  Sex: Male

DRUGS (5)
  1. ESCITALOPRAM [Concomitant]
     Active Substance: ESCITALOPRAM OXALATE
     Route: 065
  2. DIVALPROEX SODIUM. [Concomitant]
     Active Substance: DIVALPROEX SODIUM
     Route: 065
  3. CLOZAPINE. [Suspect]
     Active Substance: CLOZAPINE
     Indication: SCHIZOAFFECTIVE DISORDER
     Route: 065
  4. PALIPERIDONE. [Concomitant]
     Active Substance: PALIPERIDONE
     Route: 065
  5. BENZTROPINE. [Concomitant]
     Active Substance: BENZTROPINE
     Route: 065

REACTIONS (7)
  - Eosinophilic oesophagitis [Unknown]
  - Acute kidney injury [Unknown]
  - Gastroenteritis eosinophilic [Unknown]
  - Eosinophilia [Recovering/Resolving]
  - Eosinophilic myocarditis [Unknown]
  - Pericarditis [Unknown]
  - Eosinophilic pneumonia [Unknown]
